FAERS Safety Report 15631190 (Version 2)
Quarter: 2018Q4

REPORT INFORMATION
  Report Type: Spontaneous
  Country: CA (occurrence: CA)
  Receive Date: 20181119
  Receipt Date: 20181121
  Transmission Date: 20190205
  Serious: Yes (Other)
  Sender: FDA-Public Use
  Company Number: CA-TEVA-2018-CA-977992

PATIENT
  Age: 68 Year
  Sex: Male

DRUGS (2)
  1. DOXORUBICIN [Suspect]
     Active Substance: DOXORUBICIN
     Indication: MYXOFIBROSARCOMA
     Route: 065
  2. OLARATUMAB [Suspect]
     Active Substance: OLARATUMAB
     Indication: MYXOFIBROSARCOMA
     Route: 065

REACTIONS (1)
  - Malignant neoplasm progression [Unknown]
